FAERS Safety Report 5895261-6 (Version None)
Quarter: 2008Q3

REPORT INFORMATION
  Report Type: 
  Country: None (occurrence: None)
  Receive Date: 20080924
  Receipt Date: 20080922
  Transmission Date: 20090109
  Serious: Yes (Hospitalization)
  Sender: FDA-Public Use
  Company Number: D0057633A

PATIENT
  Age: 42 Year
  Sex: Female

DRUGS (3)
  1. LAMICTAL [Suspect]
     Dosage: 225MG PER DAY
     Route: 048
     Dates: start: 20080327
  2. PHENYTOIN [Concomitant]
     Dosage: 100MG TWICE PER DAY
     Route: 048
     Dates: start: 20080301
  3. URSO FALK [Concomitant]
     Dosage: 250MG THREE TIMES PER DAY
     Route: 048

REACTIONS (3)
  - ANAEMIA [None]
  - BLOOD TEST ABNORMAL [None]
  - HEPATIC ENZYME INCREASED [None]
